FAERS Safety Report 4872705-X (Version None)
Quarter: 2006Q1

REPORT INFORMATION
  Report Type: 
  Country: None (occurrence: None)
  Receive Date: 20060103
  Receipt Date: 20051221
  Transmission Date: 20060701
  Serious: No
  Sender: FDA-Public Use
  Company Number: US 0508120905

PATIENT
  Age: 28 Year
  Sex: Male
  Weight: 200 kg

DRUGS (4)
  1. ZYPREXA [Suspect]
     Indication: ANXIETY
     Dosage: SEE IMAGE, ORAL
     Route: 048
     Dates: start: 20030101, end: 20040101
  2. ZYPREXA [Suspect]
     Indication: ANXIETY
     Dosage: SEE IMAGE, ORAL
     Route: 048
     Dates: start: 20021213
  3. REMERON [Concomitant]
  4. PAXIL [Concomitant]

REACTIONS (3)
  - ABDOMINAL PAIN [None]
  - DIABETES MELLITUS [None]
  - HAEMATOCHEZIA [None]
